FAERS Safety Report 7767629-4 (Version None)
Quarter: 2011Q3

REPORT INFORMATION
  Report Type: 
  Country: None (occurrence: None)
  Receive Date: 20110919
  Receipt Date: 20110907
  Transmission Date: 20111222
  Serious: Yes (Hospitalization)
  Sender: FDA-Public Use
  Company Number: AXC-2011-000422

PATIENT
  Age: 3 Month
  Sex: Female
  Weight: 6.1 kg

DRUGS (2)
  1. PANCRELIPASE TM (PANCRELIPASE) CAPSULE, 5000USP [Suspect]
     Indication: PANCREATIC INSUFFICIENCY
     Dosage: 2 CAPSULES BEFORE EACH FEEDING, ORAL
     Route: 048
     Dates: start: 20110815, end: 20110824
  2. AQUADEKS (MULTIVITAMINS) ORAL DROP [Suspect]
     Indication: PRODUCT USED FOR UNKNOWN INDICATION
     Dates: end: 20110101

REACTIONS (3)
  - GASTROENTERITIS [None]
  - FREQUENT BOWEL MOVEMENTS [None]
  - WRONG DRUG ADMINISTERED [None]
